FAERS Safety Report 15337398 (Version 1)
Quarter: 2018Q3

REPORT INFORMATION
  Report Type: Spontaneous
  Country: DE (occurrence: DE)
  Receive Date: 20180831
  Receipt Date: 20180831
  Transmission Date: 20181010
  Serious: Yes (Other)
  Sender: FDA-Public Use
  Company Number: DE-INCYTE CORPORATION-2018IN008782

PATIENT

DRUGS (1)
  1. JAKAVI [Suspect]
     Active Substance: RUXOLITINIB
     Indication: MYELOPROLIFERATIVE NEOPLASM
     Dosage: UNK
     Route: 065
     Dates: start: 20150210

REACTIONS (2)
  - Herpes zoster [Recovered/Resolved]
  - Neuralgia [Recovered/Resolved]

NARRATIVE: CASE EVENT DATE: 20150625
